FAERS Safety Report 15814419 (Version 2)
Quarter: 2019Q1

REPORT INFORMATION
  Report Type: Spontaneous
  Country: CA (occurrence: CA)
  Receive Date: 20190111
  Receipt Date: 20190304
  Transmission Date: 20190417
  Serious: Yes (Hospitalization, Other)
  Sender: FDA-Public Use
  Company Number: CA-PFIZER INC-2019015468

PATIENT
  Age: 91 Year
  Sex: Female

DRUGS (2)
  1. TOVIAZ [Suspect]
     Active Substance: FESOTERODINE FUMARATE
     Indication: MIXED INCONTINENCE
     Dosage: 4 MG, DAILY
     Route: 048
     Dates: start: 20180803, end: 20180810
  2. DERMOVATE [Concomitant]
     Active Substance: CLOBETASOL
     Indication: LICHEN SCLEROSUS
     Dosage: UNK UNK, 2X/DAY
     Route: 061
     Dates: start: 20180803

REACTIONS (2)
  - Fall [Recovered/Resolved]
  - Atrial fibrillation [Recovered/Resolved]

NARRATIVE: CASE EVENT DATE: 20180810
